FAERS Safety Report 9669866 (Version 2)
Quarter: 2013Q4

REPORT INFORMATION
  Report Type: Report from Study
  Country: JP (occurrence: JP)
  Receive Date: 20131105
  Receipt Date: 20131212
  Transmission Date: 20140711
  Serious: Yes (Hospitalization, Other)
  Sender: FDA-Public Use
  Company Number: JP-TAKEDA-2013TJP002355

PATIENT
  Age: 79 Year
  Sex: Male
  Weight: 50 kg

DRUGS (13)
  1. LANSOPRAZOLE [Suspect]
     Indication: PROPHYLAXIS AGAINST GASTROINTESTINAL ULCER
     Dosage: 15 MG, QD
     Route: 048
     Dates: start: 20120924
  2. BAYASPIRIN [Concomitant]
     Indication: THROMBOSIS PROPHYLAXIS
     Dosage: 100 MG, 1 DAYS
     Route: 048
  3. ITOROL [Concomitant]
     Dosage: 40 MG, 1 DAYS
     Route: 048
  4. GASTER D [Concomitant]
     Dosage: 20 MG, 1 DAYS
     Route: 048
  5. LASIX                              /00032601/ [Concomitant]
     Dosage: 40 MG, 1 DAYS
     Route: 048
  6. ALDACTONE-A [Concomitant]
     Dosage: 25 MG, 1 DAYS
     Route: 048
  7. ZYLORIC [Concomitant]
     Dosage: 10 MG, 1 DAYS
     Route: 048
  8. NU-LOTAN [Concomitant]
     Dosage: 25 MG, 1 DAYS
     Route: 048
  9. GLUCONSAN K [Concomitant]
     Dosage: 6 GRAM, 1 DAYS
     Route: 048
  10. FRANDOL [Concomitant]
     Dosage: 40 MG, 1 DAYS
     Route: 062
  11. WARFARIN POTASSIUM [Concomitant]
     Dosage: 1 MG, 1 DAYS
     Route: 048
  12. MOBIC [Concomitant]
     Dosage: 10 MG, 1 DAYS
     Route: 048
  13. DIART [Concomitant]
     Dosage: 60 MG, 1 DAYS
     Route: 048
     Dates: start: 20130124

REACTIONS (3)
  - Cardiac failure congestive [Recovered/Resolved]
  - Cardiac failure congestive [Recovering/Resolving]
  - Cardiac failure congestive [Recovered/Resolved]
